FAERS Safety Report 14982595 (Version 1)
Quarter: 2018Q2

REPORT INFORMATION
  Report Type: Spontaneous
  Country: US (occurrence: US)
  Receive Date: 20180607
  Receipt Date: 20180607
  Transmission Date: 20180711
  Serious: No
  Sender: FDA-Public Use
  Company Number: US-UNITED THERAPEUTICS-UNT-2018-007820

PATIENT
  Age: 55 Year
  Sex: Female

DRUGS (1)
  1. REMODULIN [Suspect]
     Active Substance: TREPROSTINIL
     Indication: PRODUCT USED FOR UNKNOWN INDICATION
     Dosage: 0.0015 ?G/KG, CONTINUING
     Route: 041
     Dates: start: 20180518

REACTIONS (2)
  - Pyrexia [Recovered/Resolved]
  - Oxygen consumption increased [Recovering/Resolving]

NARRATIVE: CASE EVENT DATE: 201805
